FAERS Safety Report 15962465 (Version 2)
Quarter: 2019Q1

REPORT INFORMATION
  Report Type: Report from Study
  Country: CA (occurrence: CA)
  Receive Date: 20190214
  Receipt Date: 20190306
  Transmission Date: 20190417
  Serious: Yes (Hospitalization, Other)
  Sender: FDA-Public Use
  Company Number: CA-JNJFOC-20190208299

PATIENT
  Age: 90 Year
  Sex: Male

DRUGS (14)
  1. IMBRUVICA [Suspect]
     Active Substance: IBRUTINIB
     Indication: CHRONIC LYMPHOCYTIC LEUKAEMIA
     Route: 048
     Dates: start: 20190201
  2. PANTOPRAZOLE [Concomitant]
     Active Substance: PANTOPRAZOLE
  3. ELTROXIN [Concomitant]
     Active Substance: LEVOTHYROXINE
  4. AMIODARONE [Concomitant]
     Active Substance: AMIODARONE
     Route: 065
  5. ELIQUIS [Concomitant]
     Active Substance: APIXABAN
  6. HYDROMORPHONE [Concomitant]
     Active Substance: HYDROMORPHONE
  7. ALENDRONATE [Concomitant]
     Active Substance: ALENDRONATE SODIUM
  8. SENOKOT [Concomitant]
     Active Substance: SENNOSIDES
  9. TAMSULOSIN [Concomitant]
     Active Substance: TAMSULOSIN
  10. DUTASTERIDE. [Concomitant]
     Active Substance: DUTASTERIDE
  11. RANITIDINE. [Concomitant]
     Active Substance: RANITIDINE
  12. IMBRUVICA [Suspect]
     Active Substance: IBRUTINIB
     Indication: CHRONIC LYMPHOCYTIC LEUKAEMIA
     Dosage: STRENGTH = 140 MG
     Route: 048
     Dates: start: 20190128
  13. LEVOCARB [Concomitant]
     Active Substance: CARBIDOPA\LEVODOPA
  14. OMNARIS [Concomitant]
     Active Substance: CICLESONIDE

REACTIONS (3)
  - Hospitalisation [Unknown]
  - Haemorrhage [Unknown]
  - Tooth extraction [Unknown]

NARRATIVE: CASE EVENT DATE: 20190214
